FAERS Safety Report 16044933 (Version 1)
Quarter: 2019Q1

REPORT INFORMATION
  Report Type: Spontaneous
  Country: DE (occurrence: DE)
  Receive Date: 20190307
  Receipt Date: 20190307
  Transmission Date: 20190418
  Serious: Yes (Hospitalization, Other)
  Sender: FDA-Public Use
  Company Number: DE-ACCORD-110534

PATIENT
  Age: 83 Year
  Sex: Female
  Weight: 48 kg

DRUGS (9)
  1. LORAZEPAM. [Suspect]
     Active Substance: LORAZEPAM
     Indication: PRODUCT USED FOR UNKNOWN INDICATION
  2. NOVALGIN (METAMIZOLE SODIUM) [Suspect]
     Active Substance: METAMIZOLE SODIUM
     Indication: SCIATICA
     Dosage: NOT KNOWN IN HEIGHT
     Route: 042
     Dates: start: 20180628
  3. LEVETIRACETAM. [Suspect]
     Active Substance: LEVETIRACETAM
     Indication: EPILEPSY
     Dosage: 500-0-500 FROM 29.08. DISMISSING KEPPRA
     Route: 048
     Dates: start: 20180816
  4. NAROPIN [Suspect]
     Active Substance: ROPIVACAINE HYDROCHLORIDE
     Indication: PAIN IN EXTREMITY
     Dosage: TRIAM UND NAROPIN 20 INJ 1 X O,5 UND 2MG 10 ML
     Route: 008
     Dates: start: 20180622
  5. IODINE. [Suspect]
     Active Substance: IODINE
     Indication: PRODUCT USED FOR UNKNOWN INDICATION
  6. COTRIM FORTE [Suspect]
     Active Substance: SULFAMETHOXAZOLE\TRIMETHOPRIM
     Indication: CYSTITIS NONINFECTIVE
     Route: 048
     Dates: start: 20180811, end: 20180816
  7. FOLIC ACID. [Concomitant]
     Active Substance: FOLIC ACID
     Indication: SCIATICA
     Dosage: 1 AMPOULE PER DAY, ALSO RECEIVED THROUGH INTRAMUSCULAR ROUTE
     Route: 014
     Dates: start: 20180625
  8. GABAPENTIN. [Suspect]
     Active Substance: GABAPENTIN
     Indication: NEURALGIA
     Dosage: 500?
     Route: 048
     Dates: start: 20180730
  9. TRIAM (TRIAMCINOLONE) [Suspect]
     Active Substance: TRIAMCINOLONE
     Indication: SCIATICA
     Dosage: TRIAM UND NAROPIN 20 INJ 1 X O,5 UND 2MG 10 ML
     Route: 008
     Dates: start: 20180622

REACTIONS (8)
  - Platelet count decreased [Unknown]
  - Somnolence [Unknown]
  - Loss of consciousness [Recovering/Resolving]
  - Gamma-glutamyltransferase increased [Unknown]
  - Dysphagia [Recovering/Resolving]
  - Cerebral haemorrhage [Unknown]
  - Sopor [Unknown]
  - Epilepsy [Unknown]

NARRATIVE: CASE EVENT DATE: 201807
